FAERS Safety Report 10410598 (Version 1)
Quarter: 2014Q2

REPORT INFORMATION
  Report Type: Spontaneous
  Country: US (occurrence: None)
  Receive Date: 20140530
  Receipt Date: 20140530
  Transmission Date: 20141212
  Serious: No
  Sender: FDA-Public Use
  Company Number: 226641LEO

PATIENT
  Sex: Female

DRUGS (1)
  1. PICATO [Suspect]
     Indication: ACTINIC KERATOSIS

REACTIONS (4)
  - Application site discomfort [None]
  - Application site pain [None]
  - Wrong technique in drug usage process [None]
  - Incorrect drug administration duration [None]
